FAERS Safety Report 26064229 (Version 1)
Quarter: 2025Q4

REPORT INFORMATION
  Report Type: Spontaneous
  Country: JP (occurrence: JP)
  Receive Date: 20251119
  Receipt Date: 20251119
  Transmission Date: 20260118
  Serious: Yes (Death, Other)
  Sender: ABBVIE
  Company Number: JP-ABBVIE-6553967

PATIENT

DRUGS (1)
  1. VENCLEXTA [Suspect]
     Active Substance: VENETOCLAX
     Indication: Chronic myeloid leukaemia
     Route: 048

REACTIONS (4)
  - Death [Fatal]
  - Lymphoma [Unknown]
  - Acute myeloid leukaemia recurrent [Unknown]
  - Chronic myeloid leukaemia recurrent [Unknown]
